FAERS Safety Report 19314603 (Version 1)
Quarter: 2021Q2

REPORT INFORMATION
  Report Type: Spontaneous
  Country: US (occurrence: US)
  Receive Date: 20210527
  Receipt Date: 20210527
  Transmission Date: 20210717
  Serious: Yes (Other)
  Sender: FDA-Public Use
  Company Number: US-PFIZER INC-2021553697

PATIENT
  Age: 57 Year
  Sex: Female

DRUGS (1)
  1. MISOPROSTOL. [Suspect]
     Active Substance: MISOPROSTOL
     Indication: UTERINE HAEMORRHAGE
     Dosage: UNK
     Route: 067

REACTIONS (3)
  - Off label use [Unknown]
  - Arteriospasm coronary [Unknown]
  - Product use issue [Unknown]
